FAERS Safety Report 20089573 (Version 1)
Quarter: 2021Q4

REPORT INFORMATION
  Report Type: Spontaneous
  Country: DE (occurrence: DE)
  Receive Date: 20211119
  Receipt Date: 20211119
  Transmission Date: 20220303
  Serious: Yes (Life-Threatening, Hospitalization, Other)
  Sender: FDA-Public Use
  Company Number: DE-AstraZeneca-2020SE05913

PATIENT
  Age: 78 Year
  Sex: Female

DRUGS (57)
  1. BEVACIZUMAB [Suspect]
     Active Substance: BEVACIZUMAB
     Indication: Ovarian cancer
     Dosage: 15 MILLIGRAM/KILOGRAM
     Route: 042
     Dates: start: 20191008, end: 20191029
  2. BEVACIZUMAB [Suspect]
     Active Substance: BEVACIZUMAB
     Dosage: 15 MILLIGRAM/KILOGRAM
     Route: 042
     Dates: start: 20191119, end: 20191119
  3. BEVACIZUMAB [Suspect]
     Active Substance: BEVACIZUMAB
     Dosage: 15 MILLIGRAM/KILOGRAM
     Route: 042
     Dates: start: 20191216, end: 20191216
  4. BEVACIZUMAB [Suspect]
     Active Substance: BEVACIZUMAB
     Dosage: 15 MILLIGRAM/KILOGRAM
     Route: 042
     Dates: start: 20200130, end: 20200130
  5. BEVACIZUMAB [Suspect]
     Active Substance: BEVACIZUMAB
     Dosage: 15 MILLIGRAM/KILOGRAM
     Route: 042
     Dates: start: 20200219, end: 20200219
  6. BEVACIZUMAB [Suspect]
     Active Substance: BEVACIZUMAB
     Dosage: 15 MILLIGRAM/KILOGRAM
     Route: 042
     Dates: start: 20200312, end: 20200312
  7. BEVACIZUMAB [Suspect]
     Active Substance: BEVACIZUMAB
     Dosage: 15 MILLIGRAM/KILOGRAM
     Route: 042
     Dates: start: 20200402, end: 20200423
  8. BEVACIZUMAB [Suspect]
     Active Substance: BEVACIZUMAB
     Dosage: 15 MILLIGRAM/KILOGRAM
     Route: 042
     Dates: start: 20200514, end: 20200716
  9. BEVACIZUMAB [Suspect]
     Active Substance: BEVACIZUMAB
     Dosage: 15 MILLIGRAM/KILOGRAM
     Route: 042
     Dates: start: 20200806, end: 20200806
  10. BEVACIZUMAB [Suspect]
     Active Substance: BEVACIZUMAB
     Dosage: 15 MILLIGRAM/KILOGRAM
     Route: 042
     Dates: start: 20201008, end: 20201029
  11. BEVACIZUMAB [Suspect]
     Active Substance: BEVACIZUMAB
     Dosage: 15 MILLIGRAM/KILOGRAM
     Route: 042
     Dates: start: 20201119, end: 20201119
  12. BEVACIZUMAB [Suspect]
     Active Substance: BEVACIZUMAB
     Dosage: 15 MILLIGRAM/KILOGRAM
     Route: 042
     Dates: start: 20201210, end: 20201210
  13. BEVACIZUMAB [Suspect]
     Active Substance: BEVACIZUMAB
     Dosage: 15 MILLIGRAM/KILOGRAM
     Route: 042
     Dates: start: 20210107, end: 20210128
  14. DURVALUMAB [Suspect]
     Active Substance: DURVALUMAB
     Indication: Ovarian cancer
     Dosage: 1120 MILLIGRAM, Q3WK
     Route: 042
     Dates: start: 20200604, end: 20200604
  15. DURVALUMAB [Suspect]
     Active Substance: DURVALUMAB
     Dosage: 1120 MILLIGRAM, Q3WK
     Route: 042
     Dates: start: 20200130, end: 20200130
  16. DURVALUMAB [Suspect]
     Active Substance: DURVALUMAB
     Dosage: 1120 MILLIGRAM, Q3WK
     Route: 042
     Dates: start: 20210311, end: 20210331
  17. DURVALUMAB [Suspect]
     Active Substance: DURVALUMAB
     Dosage: 1120 MILLIGRAM, Q3WK
     Route: 042
     Dates: start: 20210218, end: 20210218
  18. DURVALUMAB [Suspect]
     Active Substance: DURVALUMAB
     Dosage: 1120 MILLIGRAM, Q3WK
     Route: 042
     Dates: start: 20200716, end: 20200716
  19. DURVALUMAB [Suspect]
     Active Substance: DURVALUMAB
     Dosage: 1120 MILLIGRAM, Q3WK
     Route: 042
     Dates: start: 20200625, end: 20200625
  20. DURVALUMAB [Suspect]
     Active Substance: DURVALUMAB
     Dosage: 1120 MILLIGRAM, Q3WK
     Route: 042
     Dates: start: 20210512, end: 20210512
  21. DURVALUMAB [Suspect]
     Active Substance: DURVALUMAB
     Dosage: 1120 MILLIGRAM, Q3WK
     Route: 042
     Dates: start: 20191008, end: 20191029
  22. DURVALUMAB [Suspect]
     Active Substance: DURVALUMAB
     Dosage: 1120 MILLIGRAM, Q3WK
     Route: 042
     Dates: start: 20191119, end: 20191119
  23. DURVALUMAB [Suspect]
     Active Substance: DURVALUMAB
     Dosage: 1120 MILLIGRAM, Q3WK
     Route: 042
     Dates: start: 20200806, end: 20200806
  24. DURVALUMAB [Suspect]
     Active Substance: DURVALUMAB
     Dosage: 1120 MILLIGRAM, Q3WK
     Route: 042
     Dates: start: 20200514, end: 20200514
  25. DURVALUMAB [Suspect]
     Active Substance: DURVALUMAB
     Dosage: 1120 MILLIGRAM, Q3WK
     Route: 042
     Dates: start: 20200403, end: 20200403
  26. DURVALUMAB [Suspect]
     Active Substance: DURVALUMAB
     Dosage: 1120 MILLIGRAM, Q3WK
     Route: 042
     Dates: start: 20200219, end: 20200219
  27. DURVALUMAB [Suspect]
     Active Substance: DURVALUMAB
     Dosage: 1120 MILLIGRAM, Q3WK
     Route: 042
     Dates: start: 20210107, end: 20210128
  28. DURVALUMAB [Suspect]
     Active Substance: DURVALUMAB
     Dosage: 1120 MILLIGRAM, Q3WK
     Route: 042
     Dates: start: 20201119, end: 20201119
  29. DURVALUMAB [Suspect]
     Active Substance: DURVALUMAB
     Dosage: 1120 MILLIGRAM, Q3WK
     Route: 042
     Dates: start: 20210422, end: 20210422
  30. DURVALUMAB [Suspect]
     Active Substance: DURVALUMAB
     Dosage: 1120 MILLIGRAM, Q3WK
     Route: 042
     Dates: start: 20210603, end: 20210622
  31. DURVALUMAB [Suspect]
     Active Substance: DURVALUMAB
     Dosage: 1120 MILLIGRAM, Q3WK
     Route: 042
     Dates: start: 20201029, end: 20201029
  32. DURVALUMAB [Suspect]
     Active Substance: DURVALUMAB
     Dosage: 1120 MILLIGRAM, Q3WK
     Route: 042
     Dates: start: 20191216, end: 20191216
  33. DURVALUMAB [Suspect]
     Active Substance: DURVALUMAB
     Dosage: 1120 MILLIGRAM, Q3WK
     Route: 042
     Dates: start: 20201008, end: 20201008
  34. DURVALUMAB [Suspect]
     Active Substance: DURVALUMAB
     Dosage: 1120 MILLIGRAM, Q3WK
     Route: 042
     Dates: start: 20200312, end: 20200312
  35. OLAPARIB [Suspect]
     Active Substance: OLAPARIB
     Indication: Ovarian cancer
     Dosage: 300 MILLIGRAM, BID
     Route: 048
     Dates: start: 20200826, end: 20201007
  36. OLAPARIB [Suspect]
     Active Substance: OLAPARIB
     Dosage: 300 MILLIGRAM, BID
     Route: 048
     Dates: start: 20201008
  37. OLAPARIB [Suspect]
     Active Substance: OLAPARIB
     Dosage: 300 MILLIGRAM, BID
     Route: 048
     Dates: start: 20200826, end: 20201007
  38. OLAPARIB [Suspect]
     Active Substance: OLAPARIB
     Dosage: 300 MILLIGRAM, BID
     Route: 048
     Dates: start: 20201008
  39. OLAPARIB [Suspect]
     Active Substance: OLAPARIB
     Dosage: 300 MILLIGRAM, BID
     Route: 048
     Dates: start: 20200219, end: 20200825
  40. CARBOPLATIN [Concomitant]
     Active Substance: CARBOPLATIN
     Indication: Ovarian cancer
     Dosage: AUC 5 OR AUC 6 Q3W
     Route: 042
     Dates: start: 20191008, end: 20191019
  41. CARBOPLATIN [Concomitant]
     Active Substance: CARBOPLATIN
     Dosage: AUC 5 OR AUC 6 Q3W
     Route: 042
     Dates: start: 20191216, end: 20191216
  42. CARBOPLATIN [Concomitant]
     Active Substance: CARBOPLATIN
     Dosage: AUC 5 OR AUC 6 Q3W
     Route: 042
     Dates: start: 20190913, end: 20190913
  43. CARBOPLATIN [Concomitant]
     Active Substance: CARBOPLATIN
     Dosage: AUC 5 OR AUC 6 Q3W
     Route: 042
     Dates: start: 20191119, end: 20191119
  44. CARBOPLATIN [Concomitant]
     Active Substance: CARBOPLATIN
     Dosage: AUC 5 OR AUC 6 Q3W
     Route: 042
     Dates: start: 20200108, end: 20200108
  45. RIVAROXABAN [Concomitant]
     Active Substance: RIVAROXABAN
     Indication: Coagulation time shortened
     Dosage: 20 MILLIGRAM
     Route: 048
     Dates: start: 2019
  46. ENALAPRIL [Concomitant]
     Active Substance: ENALAPRIL
     Indication: Hypertension
     Dosage: 10 MILLIGRAM
     Route: 048
     Dates: start: 2000
  47. LEVOTHYROXINE SODIUM [Concomitant]
     Active Substance: LEVOTHYROXINE SODIUM
     Indication: Hypothyroidism
     Dosage: 50 MICROGRAM
     Route: 048
     Dates: start: 2014
  48. APREPITANT [Concomitant]
     Active Substance: APREPITANT
     Indication: Nausea
     Dosage: 150 MILLIGRAM
     Route: 042
     Dates: start: 20190913
  49. ONDANSETRON [Concomitant]
     Active Substance: ONDANSETRON
     Indication: Nausea
     Dosage: 8 MILLIGRAM
     Route: 042
     Dates: start: 20190913
  50. PACLITAXEL [Concomitant]
     Active Substance: PACLITAXEL
     Indication: Ovarian cancer
     Dosage: 175 MILLIGRAM/SQ. METER, Q3WK
     Route: 042
     Dates: start: 20191216, end: 20191216
  51. PACLITAXEL [Concomitant]
     Active Substance: PACLITAXEL
     Dosage: 175 MILLIGRAM/SQ. METER
     Route: 042
     Dates: start: 20191008, end: 20191029
  52. PACLITAXEL [Concomitant]
     Active Substance: PACLITAXEL
     Dosage: 175 MILLIGRAM/SQ. METER, Q3WK
     Route: 042
     Dates: start: 20200108, end: 20200108
  53. PACLITAXEL [Concomitant]
     Active Substance: PACLITAXEL
     Dosage: 175 MILLIGRAM/SQ. METER, Q3WK
     Route: 042
     Dates: start: 20190913, end: 20190913
  54. PACLITAXEL [Concomitant]
     Active Substance: PACLITAXEL
     Dosage: 175 MILLIGRAM/SQ. METER, Q3WK
     Route: 042
     Dates: start: 20191119, end: 20191119
  55. METOPROLOL [Concomitant]
     Active Substance: METOPROLOL
     Indication: Hypertension
     Dosage: 95 MILLIGRAM
     Route: 048
     Dates: start: 2000
  56. CIPROFLOXACIN [Concomitant]
     Active Substance: CIPROFLOXACIN
     Indication: Urinary tract infection
     Dosage: 500 MILLIGRAM
     Route: 048
     Dates: start: 20191028
  57. CLEMASTINE [Concomitant]
     Active Substance: CLEMASTINE
     Indication: Hypersensitivity
     Dosage: 2 MILLIGRAM
     Route: 042
     Dates: start: 20190913

REACTIONS (1)
  - Hypertensive crisis [Recovered/Resolved]

NARRATIVE: CASE EVENT DATE: 20191219
